FAERS Safety Report 4375078-4 (Version None)
Quarter: 2004Q2

REPORT INFORMATION
  Report Type: 
  Country: None (occurrence: None)
  Receive Date: 20040603
  Receipt Date: 20040526
  Transmission Date: 20050107
  Serious: Yes (Death, Life-Threatening, Hospitalization, Disabling)
  Sender: FDA-Public Use
  Company Number: 2004AP02406

PATIENT
  Age: 71 Year
  Sex: Male
  Weight: 59.2 kg

DRUGS (4)
  1. IRESSA [Suspect]
     Indication: PROSTATE CANCER METASTATIC
     Dosage: 250 MG DAILY PO
     Route: 048
     Dates: start: 20040204, end: 20040419
  2. DOCETAXEL [Suspect]
     Indication: PROSTATE CANCER METASTATIC
     Dosage: 35 MG/M2 DAILY IV
     Route: 042
     Dates: start: 20040204
  3. DOCETAXEL [Suspect]
     Indication: PROSTATE CANCER METASTATIC
     Dosage: 35 MG/M2 DAILY IV
     Route: 042
     Dates: start: 20040302
  4. DOCETAXEL [Suspect]
     Indication: PROSTATE CANCER METASTATIC
     Dosage: 35 MG/M2 DAILY IV
     Route: 042
     Dates: start: 20040330

REACTIONS (2)
  - CHRONIC OBSTRUCTIVE AIRWAYS DISEASE EXACERBATED [None]
  - PROSTATIC SPECIFIC ANTIGEN ABNORMAL [None]
